FAERS Safety Report 7942575-1 (Version None)
Quarter: 2011Q4

REPORT INFORMATION
  Report Type: 
  Country: None (occurrence: None)
  Receive Date: 20111128
  Receipt Date: 20111121
  Transmission Date: 20120403
  Serious: Yes (Other)
  Sender: FDA-Public Use
  Company Number: JP-GLAXOSMITHKLINE-B0764941A

PATIENT
  Sex: Female

DRUGS (3)
  1. PAXIL [Suspect]
     Dosage: 7.5MG PER DAY
     Route: 048
  2. PAXIL [Suspect]
     Dosage: 5MG TWICE PER DAY
     Route: 048
  3. PAXIL [Suspect]
     Indication: PRODUCT USED FOR UNKNOWN INDICATION
     Dosage: 10MG PER DAY
     Route: 048
     Dates: start: 20030101, end: 20070101

REACTIONS (10)
  - ASTHENIA [None]
  - FLASHBACK [None]
  - DRUG WITHDRAWAL SYNDROME [None]
  - DYSACUSIS [None]
  - MUSCULOSKELETAL DISCOMFORT [None]
  - DIZZINESS [None]
  - MYOCARDIAL INFARCTION [None]
  - ARRHYTHMIA [None]
  - HEADACHE [None]
  - PARAESTHESIA [None]
